FAERS Safety Report 17811362 (Version 8)
Quarter: 2020Q4

REPORT INFORMATION
  Report Type: Spontaneous
  Country: US (occurrence: US)
  Receive Date: 20200521
  Receipt Date: 20201103
  Transmission Date: 20210113
  Serious: No
  Sender: FDA-Public Use
  Company Number: US-PFIZER INC-2020199886

PATIENT
  Age: 61 Year
  Sex: Female
  Weight: 93 kg

DRUGS (5)
  1. IBRANCE [Suspect]
     Active Substance: PALBOCICLIB
     Dosage: 125 MG, CYCLIC (21 DAYS ON AND 7 DAYS OFF)
     Route: 048
     Dates: start: 202005
  2. IBRANCE [Suspect]
     Active Substance: PALBOCICLIB
     Indication: BREAST CANCER METASTATIC
     Dosage: 125 MG, CYCLIC (21 DAYS ON, 7 DAYS OFF)
     Route: 048
     Dates: start: 201804
  3. IBRANCE [Suspect]
     Active Substance: PALBOCICLIB
     Dosage: 125 MG, DAILY
     Dates: start: 201804
  4. XGEVA [Concomitant]
     Active Substance: DENOSUMAB
     Indication: METASTASES TO BONE
     Dosage: UNK
     Route: 030
     Dates: start: 20200428
  5. FASLODEX [Concomitant]
     Active Substance: FULVESTRANT
     Indication: BREAST CANCER
     Dosage: UNK
     Dates: start: 20200426

REACTIONS (12)
  - Limb discomfort [Unknown]
  - Pain [Unknown]
  - Lymphoedema [Unknown]
  - Illness [Not Recovered/Not Resolved]
  - Movement disorder [Unknown]
  - Muscular weakness [Unknown]
  - Nausea [Recovering/Resolving]
  - Feeling hot [Unknown]
  - Fatigue [Unknown]
  - Product packaging issue [Unknown]
  - Musculoskeletal disorder [Unknown]
  - Neoplasm progression [Not Recovered/Not Resolved]

NARRATIVE: CASE EVENT DATE: 202001
